FAERS Safety Report 6046980-2 (Version None)
Quarter: 2009Q1

REPORT INFORMATION
  Report Type: 
  Country: None (occurrence: None)
  Receive Date: 20090122
  Receipt Date: 20090115
  Transmission Date: 20090719
  Serious: Yes (Hospitalization, Other)
  Sender: FDA-Public Use
  Company Number: US-TYCO HEALTHCARE/MALLINCKRODT-T200900026

PATIENT
  Age: 69 Year
  Sex: Female

DRUGS (1)
  1. OPTIRAY 300 [Suspect]
     Indication: COMPUTERISED TOMOGRAM
     Dosage: 138 ML, SINGLE
     Route: 042
     Dates: start: 20090106, end: 20090106

REACTIONS (5)
  - COMPARTMENT SYNDROME [None]
  - DRUG ADMINISTRATION ERROR [None]
  - INJECTION SITE EXTRAVASATION [None]
  - INJECTION SITE OEDEMA [None]
  - INJECTION SITE VESICLES [None]
